FAERS Safety Report 6634446-8 (Version None)
Quarter: 2010Q1

REPORT INFORMATION
  Report Type: 
  Country: None (occurrence: None)
  Receive Date: 20100315
  Receipt Date: 20100303
  Transmission Date: 20100710
  Serious: Yes (Death)
  Sender: FDA-Public Use
  Company Number: GB-PFIZER INC-2008084484

PATIENT
  Age: 54 Year
  Sex: Female
  Weight: 83 kg

DRUGS (2)
  1. CHAMPIX [Suspect]
     Indication: SMOKING CESSATION THERAPY
     Route: 048
     Dates: start: 20080730, end: 20080907
  2. ORLISTAT [Concomitant]
     Indication: OVERWEIGHT
     Route: 048
     Dates: start: 20080610

REACTIONS (1)
  - ACUTE MYOCARDIAL INFARCTION [None]
